FAERS Safety Report 12693682 (Version 2)
Quarter: 2016Q4

REPORT INFORMATION
  Report Type: Spontaneous
  Country: US (occurrence: US)
  Receive Date: 20160829
  Receipt Date: 20161017
  Transmission Date: 20170207
  Serious: No
  Sender: FDA-Public Use
  Company Number: US-009507513-1608USA006154

PATIENT
  Age: 19 Year
  Sex: Female
  Weight: 51.7 kg

DRUGS (1)
  1. NEXPLANON [Suspect]
     Active Substance: ETONOGESTREL
     Dosage: UNK
     Dates: start: 201312, end: 2016

REACTIONS (6)
  - Personality change [Unknown]
  - Device difficult to use [Recovered/Resolved]
  - Implant site haemorrhage [Unknown]
  - Vaginal haemorrhage [Unknown]
  - Device deployment issue [Not Recovered/Not Resolved]
  - Complication of device removal [Recovered/Resolved]

NARRATIVE: CASE EVENT DATE: 201312
